FAERS Safety Report 19645790 (Version 1)
Quarter: 2021Q3

REPORT INFORMATION
  Report Type: Spontaneous
  Country: US (occurrence: US)
  Receive Date: 20210730
  Receipt Date: 20210730
  Transmission Date: 20211014
  Serious: No
  Sender: FDA-Public Use
  Company Number: None

PATIENT
  Age: 78 Year
  Sex: Male

DRUGS (1)
  1. REVLIMID [Suspect]
     Active Substance: LENALIDOMIDE
     Indication: PLASMA CELL MYELOMA
     Route: 048
     Dates: start: 20191011

REACTIONS (4)
  - Vomiting [None]
  - Diarrhoea [None]
  - Nausea [None]
  - Gastroenteritis [None]

NARRATIVE: CASE EVENT DATE: 20210614
